FAERS Safety Report 14949396 (Version 1)
Quarter: 2018Q2

REPORT INFORMATION
  Report Type: Spontaneous
  Country: US (occurrence: US)
  Receive Date: 20180529
  Receipt Date: 20180529
  Transmission Date: 20180711
  Serious: No
  Sender: FDA-Public Use
  Company Number: US-BIODELIVERY SCIENCES INTERNATIONAL-2017BDSI0061

PATIENT
  Sex: Male

DRUGS (2)
  1. BUPRENORPHINE/NALOXONE [Suspect]
     Active Substance: BUPRENORPHINE\NALOXONE
     Indication: DRUG DEPENDENCE
     Dosage: UNKNOWN, UNKNOWN
     Dates: start: 20170211
  2. ALPRAZOLAM. [Concomitant]
     Active Substance: ALPRAZOLAM
     Indication: PRODUCT USED FOR UNKNOWN INDICATION

REACTIONS (5)
  - Dizziness [Unknown]
  - Drug dependence [Unknown]
  - Drug ineffective [Unknown]
  - Gait disturbance [Unknown]
  - Vomiting [Unknown]

NARRATIVE: CASE EVENT DATE: 201702
